FAERS Safety Report 21889993 (Version 4)
Quarter: 2024Q1

REPORT INFORMATION
  Report Type: Report from Study
  Country: JP (occurrence: JP)
  Receive Date: 20230120
  Receipt Date: 20240314
  Transmission Date: 20240409
  Serious: Yes (Hospitalization, Other)
  Sender: FDA-Public Use
  Company Number: JP-ASTELLAS-2022JP004162

PATIENT
  Age: 47 Year
  Sex: Male

DRUGS (6)
  1. ENFORTUMAB VEDOTIN [Suspect]
     Active Substance: ENFORTUMAB VEDOTIN
     Indication: Transitional cell carcinoma
     Route: 041
     Dates: start: 20220113, end: 20220127
  2. ENFORTUMAB VEDOTIN [Suspect]
     Active Substance: ENFORTUMAB VEDOTIN
     Indication: Bladder cancer
     Route: 041
     Dates: start: 20220222, end: 20220405
  3. BETAMETHASONE DIPROPIONATE [Concomitant]
     Active Substance: BETAMETHASONE DIPROPIONATE
     Indication: Skin disorder
     Route: 065
     Dates: start: 20220314, end: 20220425
  4. GLYCOSAMINOGLYCANS [Concomitant]
     Active Substance: GLYCOSAMINOGLYCANS
     Indication: Skin disorder
     Route: 065
     Dates: start: 20220314, end: 20220425
  5. PREDONINE [Concomitant]
     Active Substance: PREDNISOLONE
     Indication: Skin disorder
     Route: 048
     Dates: start: 20220408, end: 20220510
  6. KEYTRUDA [Concomitant]
     Active Substance: PEMBROLIZUMAB
     Indication: Product used for unknown indication
     Dosage: UNK UNK, UNKNOWN FREQ.
     Route: 065
     Dates: start: 202204

REACTIONS (6)
  - Rash [Recovering/Resolving]
  - Skin disorder [Recovered/Resolved]
  - Skin disorder [Recovered/Resolved]
  - Malaise [Not Recovered/Not Resolved]
  - Hyperglycaemia [Recovered/Resolved]
  - Skin exfoliation [Not Recovered/Not Resolved]

NARRATIVE: CASE EVENT DATE: 20220101
